FAERS Safety Report 9412313 (Version 4)
Quarter: 2013Q3

REPORT INFORMATION
  Report Type: Report from Study
  Country: VE (occurrence: VE)
  Receive Date: 20130722
  Receipt Date: 20130902
  Transmission Date: 20140515
  Serious: Yes (Hospitalization, Other)
  Sender: FDA-Public Use
  Company Number: PHHY2013VE077350

PATIENT
  Age: 83 Year
  Sex: Female

DRUGS (10)
  1. ACLASTA [Suspect]
     Indication: OSTEOPOROSIS
     Dosage: 5 MG, ANNUALLY
     Route: 042
     Dates: start: 2009
  2. ACLASTA [Suspect]
     Dosage: 5 MG, ANNUALLY
     Route: 042
     Dates: start: 20101101
  3. ACLASTA [Suspect]
     Dosage: 5 MG, ANNUALLY
     Route: 042
     Dates: start: 2011
  4. ACLASTA [Suspect]
     Dosage: 5 MG, ANNUALLY
     Route: 042
     Dates: start: 20121129
  5. IDENA [Concomitant]
     Indication: OSTEOPOROSIS
     Dosage: 1 DOSE MONTHLY
  6. IDENA [Concomitant]
     Dosage: 150 MG, QD
     Route: 048
     Dates: start: 2010
  7. IDENA [Concomitant]
     Dosage: UNK
     Dates: start: 201206
  8. MIRAPEX [Concomitant]
     Indication: PARKINSON^S DISEASE
     Dosage: 25 MG
  9. MIRAPEX [Concomitant]
     Dosage: UNK MG, QD
     Route: 048
  10. MADOPAR [Concomitant]
     Indication: PARKINSON^S DISEASE
     Dosage: 400-100 MG, QD
     Route: 048

REACTIONS (6)
  - Pulmonary fibrosis [Recovering/Resolving]
  - Spinal osteoarthritis [Not Recovered/Not Resolved]
  - Spinal pain [Not Recovered/Not Resolved]
  - Urine ketone body present [Not Recovered/Not Resolved]
  - Pain [Not Recovered/Not Resolved]
  - Urinary tract infection [Recovered/Resolved]
